FAERS Safety Report 6670825-0 (Version None)
Quarter: 2010Q2

REPORT INFORMATION
  Report Type: 
  Country: None (occurrence: None)
  Receive Date: 20100407
  Receipt Date: 20100324
  Transmission Date: 20101027
  Serious: Yes (Other)
  Sender: FDA-Public Use
  Company Number: JP-SANOFI-AVENTIS-2010SA013676

PATIENT
  Age: 62 Year
  Sex: Female
  Weight: 50.7 kg

DRUGS (7)
  1. ENOXAPARIN SODIUM [Suspect]
     Route: 058
     Dates: start: 20100224, end: 20100227
  2. ENOXAPARIN SODIUM [Suspect]
     Indication: THROMBOSIS PROPHYLAXIS
     Route: 058
     Dates: start: 20100224, end: 20100227
  3. AMIKACIN SULFATE [Concomitant]
     Indication: INFECTION PROPHYLAXIS
     Route: 042
     Dates: start: 20100223, end: 20100226
  4. CEFAZOLIN SODIUM [Concomitant]
     Indication: INFECTION PROPHYLAXIS
     Route: 042
     Dates: start: 20100223, end: 20100226
  5. FERROUS SULFATE TAB [Concomitant]
     Indication: ANAEMIA
     Route: 048
     Dates: start: 20100224, end: 20100323
  6. NABOAL - SLOW RELEASE [Concomitant]
     Route: 048
     Dates: start: 20100223, end: 20100227
  7. PARIET [Concomitant]
     Route: 048
     Dates: start: 20100223, end: 20100227

REACTIONS (2)
  - ANAEMIA [None]
  - CONDITION AGGRAVATED [None]
